FAERS Safety Report 10012611 (Version 3)
Quarter: 2014Q2

REPORT INFORMATION
  Report Type: Spontaneous
  Country: US (occurrence: US)
  Receive Date: 20140314
  Receipt Date: 20140624
  Transmission Date: 20141212
  Serious: Yes (Other)
  Sender: FDA-Public Use
  Company Number: US-PFIZER INC-2014066541

PATIENT
  Age: 59 Year
  Sex: Female

DRUGS (7)
  1. LIPITOR [Suspect]
     Indication: LOW DENSITY LIPOPROTEIN INCREASED
     Dosage: 20 MG, DAILY
     Route: 048
     Dates: start: 20020410, end: 201203
  2. LIPITOR [Suspect]
     Indication: CARDIOVASCULAR EVENT PROPHYLAXIS
  3. ATORVASTATIN CALCIUM [Suspect]
     Indication: BLOOD CHOLESTEROL INCREASED
     Dosage: 40 MG, DAILY
     Dates: start: 20120220
  4. SULINDAC [Concomitant]
     Indication: ARTHRITIS
     Dosage: 150 MG, 2X/DAY
     Dates: start: 20120220, end: 20131120
  5. SULINDAC [Concomitant]
     Indication: TENDON PAIN
  6. AMLODIPINE [Concomitant]
     Indication: HYPERTENSION
     Dosage: 10 MG, DAILY
     Dates: start: 20120220
  7. HYDROCHLOROTHIAZIDE, TRIAMTERENE [Concomitant]
     Indication: HYPERTENSION
     Dosage: UNK, 37.5-25MG
     Dates: start: 20120220, end: 20131120

REACTIONS (1)
  - Type 2 diabetes mellitus [Not Recovered/Not Resolved]
